FAERS Safety Report 7306781 (Version 5)
Quarter: 2013Q3

REPORT INFORMATION
  Report Type: Spontaneous
  Country: GR (occurrence: GR)
  Receive Date: 20100305
  Receipt Date: 20130903
  Transmission Date: 20140515
  Serious: Yes (Hospitalization, Disabling)
  Sender: FDA-Public Use
  Company Number: GR-JNJFOC-20100300554

PATIENT
  Age: 65 Year
  Sex: Female
  Weight: 96 kg

DRUGS (9)
  1. CAELYX [Suspect]
     Indication: PLASMA CELL MYELOMA
     Dosage: ON DAY 1
     Route: 042
     Dates: start: 20100128
  2. CAELYX [Suspect]
     Indication: PLASMA CELL MYELOMA
     Dosage: ON DAY 1
     Route: 042
     Dates: start: 20091214
  3. CAELYX [Suspect]
     Indication: PLASMA CELL MYELOMA
     Dosage: ON DAY 1
     Route: 042
     Dates: start: 20091030
  4. VELCADE [Suspect]
     Indication: PLASMA CELL MYELOMA
     Dosage: DAYS 1,4,8,11 OF CYCLE
     Route: 042
     Dates: start: 20100128
  5. VELCADE [Suspect]
     Indication: PLASMA CELL MYELOMA
     Dosage: DAYS 1,4,8,11 OF CYCLE
     Route: 042
     Dates: start: 20091214
  6. VELCADE [Suspect]
     Indication: PLASMA CELL MYELOMA
     Dosage: DAYS 1,4,8,11 OF CYCLE
     Route: 042
     Dates: start: 20091030
  7. DEXAMETHASONE [Suspect]
     Indication: PLASMA CELL MYELOMA
     Dosage: 1 IN 1 MONTH
     Route: 048
     Dates: start: 20100129
  8. DEXAMETHASONE [Suspect]
     Indication: PLASMA CELL MYELOMA
     Dosage: DAYS 1-4
     Route: 048
     Dates: start: 20091214
  9. DEXAMETHASONE [Suspect]
     Indication: PLASMA CELL MYELOMA
     Dosage: DAYS 1-4, 9-12, 17-20 OF CYCLE
     Route: 048
     Dates: start: 20091030

REACTIONS (4)
  - Neuropathy peripheral [Recovering/Resolving]
  - Muscular weakness [Recovering/Resolving]
  - Myalgia [Recovering/Resolving]
  - Neuralgia [Recovering/Resolving]
